FAERS Safety Report 8427339-7 (Version None)
Quarter: 2012Q2

REPORT INFORMATION
  Report Type: 
  Country: None (occurrence: None)
  Receive Date: 20120611
  Receipt Date: 20120606
  Transmission Date: 20120825
  Serious: No
  Sender: FDA-Public Use
  Company Number: US-BAYER-2012-057296

PATIENT
  Age: 23 Year
  Sex: Female
  Weight: 50 kg

DRUGS (3)
  1. SPIRONOLACTONE [Concomitant]
  2. ZOLOFT [Concomitant]
  3. ALEVE (CAPLET) [Suspect]
     Dosage: 2 DF, UNK
     Route: 048
     Dates: start: 20120606

REACTIONS (1)
  - NO ADVERSE EVENT [None]
